FAERS Safety Report 5950685-3 (Version None)
Quarter: 2008Q4

REPORT INFORMATION
  Report Type: 
  Country: None (occurrence: None)
  Receive Date: 20081022
  Receipt Date: 20080620
  Transmission Date: 20090506
  Serious: No
  Sender: FDA-Public Use
  Company Number: ALL1-2008-01830

PATIENT
  Age: 15 Year
  Sex: Male
  Weight: 63.5 kg

DRUGS (5)
  1. VYVANSE [Suspect]
     Indication: ATTENTION DEFICIT/HYPERACTIVITY DISORDER
     Dosage: 30 MG, 1X/DAY:QD, ORAL ; 60 MG, 1X/DAY:QD, ORAL ; 70 MG, 1X/DAY:QD, ORAL ; 60 MG,1X/DAY:QD, ORAL
     Route: 047
     Dates: start: 20080605, end: 20080614
  2. VYVANSE [Suspect]
     Indication: ATTENTION DEFICIT/HYPERACTIVITY DISORDER
     Dosage: 30 MG, 1X/DAY:QD, ORAL ; 60 MG, 1X/DAY:QD, ORAL ; 70 MG, 1X/DAY:QD, ORAL ; 60 MG,1X/DAY:QD, ORAL
     Route: 047
     Dates: start: 20080614, end: 20080617
  3. VYVANSE [Suspect]
     Indication: ATTENTION DEFICIT/HYPERACTIVITY DISORDER
     Dosage: 30 MG, 1X/DAY:QD, ORAL ; 60 MG, 1X/DAY:QD, ORAL ; 70 MG, 1X/DAY:QD, ORAL ; 60 MG,1X/DAY:QD, ORAL
     Route: 047
     Dates: start: 20080617, end: 20080620
  4. VYVANSE [Suspect]
     Indication: ATTENTION DEFICIT/HYPERACTIVITY DISORDER
     Dosage: 30 MG, 1X/DAY:QD, ORAL ; 60 MG, 1X/DAY:QD, ORAL ; 70 MG, 1X/DAY:QD, ORAL ; 60 MG,1X/DAY:QD, ORAL
     Route: 047
     Dates: start: 20080620
  5. STRATTERA [Concomitant]

REACTIONS (2)
  - CONDUCT DISORDER [None]
  - OFF LABEL USE [None]
